FAERS Safety Report 8866236 (Version 1)
Quarter: 2012Q4

REPORT INFORMATION
  Report Type: 
  Country: AR (occurrence: AR)
  Receive Date: 20121025
  Receipt Date: 20121025
  Transmission Date: 20130627
  Serious: Yes (Other)
  Sender: FDA-Public Use
  Company Number: PHHY2012AR095700

PATIENT
  Age: 65 Year
  Sex: Female

DRUGS (2)
  1. ACLASTA [Suspect]
     Indication: OSTEOPOROSIS
     Dosage: UNK UKN, yearly
     Route: 042
     Dates: start: 2010
  2. ACLASTA [Suspect]
     Dosage: UNK UKN, yearly
     Route: 042
     Dates: start: 2011

REACTIONS (3)
  - Oral candidiasis [Recovered/Resolved]
  - Herpes simplex [Recovered/Resolved]
  - Arthralgia [Recovered/Resolved]
